FAERS Safety Report 6509820-0 (Version None)
Quarter: 2009Q4

REPORT INFORMATION
  Report Type: 
  Country: None (occurrence: None)
  Receive Date: 20091222
  Receipt Date: 20090518
  Transmission Date: 20100525
  Serious: No
  Sender: FDA-Public Use
  Company Number: US-ABBOTT-09P-163-0574760-00

PATIENT
  Sex: Male
  Weight: 25.878 kg

DRUGS (1)
  1. OMNICEF [Suspect]
     Indication: OTITIS MEDIA
     Dates: start: 20080101, end: 20080101

REACTIONS (4)
  - ERYTHEMA [None]
  - MUSCULOSKELETAL DISCOMFORT [None]
  - RASH PRURITIC [None]
  - URTICARIA [None]
